FAERS Safety Report 4687840-9 (Version None)
Quarter: 2005Q2

REPORT INFORMATION
  Report Type: 
  Country: None (occurrence: None)
  Receive Date: 20050610
  Receipt Date: 20050602
  Transmission Date: 20051028
  Serious: Yes (Other)
  Sender: FDA-Public Use
  Company Number: AU-ABBOTT-05P-008-0302250-00

PATIENT
  Age: 28 Year
  Sex: Male

DRUGS (3)
  1. EPILIM TABLETS [Suspect]
     Indication: DRUG USE FOR UNKNOWN INDICATION
     Route: 048
     Dates: start: 19781031
  2. EPILIM TABLETS [Suspect]
     Route: 048
  3. MEDICINALPRODUCT NOT SPECIFIED BY SENDER [Concomitant]

REACTIONS (4)
  - CONVULSION [None]
  - DEPRESSION [None]
  - GAIT DISTURBANCE [None]
  - SOMNOLENCE [None]
